FAERS Safety Report 17497804 (Version 2)
Quarter: 2020Q1

REPORT INFORMATION
  Report Type: Spontaneous
  Country: DE (occurrence: DE)
  Receive Date: 20200304
  Receipt Date: 20200327
  Transmission Date: 20200409
  Serious: Yes (Hospitalization)
  Sender: FDA-Public Use
  Company Number: DE-MYLANLABS-2020M1023201

PATIENT
  Age: 27 Year
  Sex: Male
  Weight: 65 kg

DRUGS (1)
  1. BACLOFEN. [Suspect]
     Active Substance: BACLOFEN
     Indication: MUSCLE TIGHTNESS
     Dosage: 25 MILLIGRAM, QD
     Route: 048
     Dates: start: 20191120, end: 20191219

REACTIONS (7)
  - Muscle twitching [Recovering/Resolving]
  - Feeling abnormal [Recovering/Resolving]
  - Paraesthesia [Recovering/Resolving]
  - Dysaesthesia [Recovering/Resolving]
  - Muscle tightness [Recovering/Resolving]
  - Mobility decreased [Recovering/Resolving]
  - Muscle spasms [Recovering/Resolving]

NARRATIVE: CASE EVENT DATE: 20191219
